FAERS Safety Report 8226079-7 (Version None)
Quarter: 2012Q1

REPORT INFORMATION
  Report Type: 
  Country: None (occurrence: None)
  Receive Date: 20120319
  Receipt Date: 20120305
  Transmission Date: 20120608
  Serious: Yes (Other)
  Sender: FDA-Public Use
  Company Number: 2011MA009459

PATIENT
  Age: 38 Year
  Sex: Female

DRUGS (6)
  1. PROGRAF [Concomitant]
  2. TRAMADOL HCL [Concomitant]
  3. MYCOPHENOLATE MOFETIL (CELLCEPT) [Concomitant]
  4. PREDNISONE TAB [Concomitant]
  5. MORPHINE [Concomitant]
  6. DIAZEPAM [Suspect]
     Dosage: PO
     Route: 048
     Dates: start: 19941201

REACTIONS (17)
  - INCORRECT DOSE ADMINISTERED [None]
  - DEATH OF RELATIVE [None]
  - DRUG DEPENDENCE [None]
  - TREMOR [None]
  - DRUG ABUSE [None]
  - RESTLESSNESS [None]
  - DEPRESSION [None]
  - INITIAL INSOMNIA [None]
  - RESPIRATORY ARREST [None]
  - ANXIETY [None]
  - PHOBIA [None]
  - WITHDRAWAL SYNDROME [None]
  - EUPHORIC MOOD [None]
  - DEPRESSED MOOD [None]
  - PALLOR [None]
  - FEELING ABNORMAL [None]
  - DIZZINESS [None]
